FAERS Safety Report 8306173-2 (Version None)
Quarter: 2012Q2

REPORT INFORMATION
  Report Type: 
  Country: None (occurrence: None)
  Receive Date: 20120423
  Receipt Date: 20120416
  Transmission Date: 20120825
  Serious: Yes (Other)
  Sender: FDA-Public Use
  Company Number: ES-PFIZER INC-2012093558

PATIENT
  Age: 78 Year
  Sex: Female

DRUGS (2)
  1. TOVIAZ [Suspect]
     Indication: HYPERTONIC BLADDER
     Dosage: 80 MG, UNK
  2. TOVIAZ [Suspect]
     Indication: URINARY INCONTINENCE

REACTIONS (4)
  - INTRAOCULAR PRESSURE INCREASED [None]
  - EYE PAIN [None]
  - BLINDNESS [None]
  - GLAUCOMA [None]
